FAERS Safety Report 10638450 (Version 1)
Quarter: 2014Q4

REPORT INFORMATION
  Report Type: Spontaneous
  Country: US (occurrence: None)
  Receive Date: 20141204
  Receipt Date: 20141204
  Transmission Date: 20150529
  Serious: Yes (Other)
  Sender: FDA-Public Use
  Company Number: 2014SGN01457

PATIENT
  Sex: Female

DRUGS (1)
  1. ADCETRIS [Suspect]
     Active Substance: BRENTUXIMAB VEDOTIN
     Indication: MYCOSIS FUNGOIDES
     Dates: start: 20140911

REACTIONS (3)
  - Off label use [None]
  - Pulmonary toxicity [None]
  - Dyspnoea [None]

NARRATIVE: CASE EVENT DATE: 20141014
